FAERS Safety Report 9522425 (Version 1)
Quarter: 2013Q3

REPORT INFORMATION
  Report Type: Spontaneous
  Country: CA (occurrence: CA)
  Receive Date: 20130913
  Receipt Date: 20130913
  Transmission Date: 20140515
  Serious: Yes (Hospitalization)
  Sender: FDA-Public Use
  Company Number: CA-ASTRAZENECA-2013SE67675

PATIENT
  Age: 47 Year
  Sex: Male
  Weight: 75 kg

DRUGS (4)
  1. ENTOCORT [Suspect]
     Route: 048
  2. IMURAN [Suspect]
     Route: 065
  3. HUMIRA [Suspect]
     Route: 058
  4. SALOFALK [Concomitant]

REACTIONS (2)
  - Oral herpes [Unknown]
  - Pneumonia [Unknown]
